FAERS Safety Report 5775184-3 (Version None)
Quarter: 2008Q2

REPORT INFORMATION
  Report Type: 
  Country: None (occurrence: None)
  Receive Date: 20080616
  Receipt Date: 20080616
  Transmission Date: 20081010
  Serious: Yes (Death)
  Sender: FDA-Public Use
  Company Number: None

PATIENT
  Age: 68 Year
  Sex: Female
  Weight: 60 kg

DRUGS (2)
  1. CETUXIMAB (400 MG/M2) [Suspect]
     Indication: COLORECTAL CANCER
     Dosage: 400 MG/M2 LOADING DOSE
     Dates: start: 20071214, end: 20071214
  2. COUMADIN [Concomitant]

REACTIONS (2)
  - HYPERSENSITIVITY [None]
  - INFUSION RELATED REACTION [None]
